FAERS Safety Report 4969983-5 (Version None)
Quarter: 2006Q1

REPORT INFORMATION
  Report Type: 
  Country: None (occurrence: None)
  Receive Date: 20060202
  Receipt Date: 20050907
  Transmission Date: 20060701
  Serious: Yes (Hospitalization)
  Sender: FDA-Public Use
  Company Number: US-2005-018586

PATIENT
  Age: 36 Year
  Sex: Female
  Weight: 55.3 kg

DRUGS (3)
  1. MIRENA [Suspect]
     Indication: CONTRACEPTION
     Dosage: 20 UG, CONT, INTRA-UTERINE
     Route: 015
     Dates: start: 20030325, end: 20050906
  2. LEVOXYL [Concomitant]
  3. MINOCYCLINE HCL [Concomitant]

REACTIONS (1)
  - PREGNANCY WITH CONTRACEPTIVE DEVICE [None]
